FAERS Safety Report 16367322 (Version 1)
Quarter: 2019Q2

REPORT INFORMATION
  Report Type: Spontaneous
  Country: US (occurrence: US)
  Receive Date: 20190529
  Receipt Date: 20190529
  Transmission Date: 20190711
  Serious: Yes (Hospitalization)
  Sender: FDA-Public Use
  Company Number: US-PFIZER INC-2019127013

PATIENT
  Age: 69 Year
  Sex: Female

DRUGS (1)
  1. LOMOTIL [Suspect]
     Active Substance: ATROPINE SULFATE\DIPHENOXYLATE HYDROCHLORIDE
     Indication: ABNORMAL FAECES
     Dosage: 1 DOSAGE FORM, 3X/DAY
     Route: 048
     Dates: start: 20170711, end: 20170712

REACTIONS (5)
  - Recalled product [Unknown]
  - Abdominal pain [Recovered/Resolved]
  - Recalled product administered [Unknown]
  - Ileus [Recovered/Resolved]
  - Condition aggravated [Recovered/Resolved]

NARRATIVE: CASE EVENT DATE: 20170712
